FAERS Safety Report 13260258 (Version 1)
Quarter: 2017Q1

REPORT INFORMATION
  Report Type: Spontaneous
  Country: US (occurrence: US)
  Receive Date: 20170222
  Receipt Date: 20170222
  Transmission Date: 20170428
  Serious: Yes (Life-Threatening, Hospitalization, Disabling, Other)
  Sender: FDA-Public Use
  Company Number: None

PATIENT
  Age: 22 Year
  Sex: Female
  Weight: 56.75 kg

DRUGS (11)
  1. CLONIDINE. [Concomitant]
     Active Substance: CLONIDINE
  2. DEXTROAMPHET SACCHARAT, AMPHET ASPARTATE, DEXTROAMPHET SULFATE AND AMPHET SULFAT [Suspect]
     Active Substance: AMPHETAMINE ASPARTATE\AMPHETAMINE SULFATE\DEXTROAMPHETAMINE SACCHARATE\DEXTROAMPHETAMINE SULFATE
     Indication: ATTENTION DEFICIT/HYPERACTIVITY DISORDER
     Dosage: ?          QUANTITY:1 CAPSULE?
     Route: 048
     Dates: start: 2014, end: 20170108
  3. FLUTICASONE NASAL SPRAY [Concomitant]
     Active Substance: FLUTICASONE
  4. CETIRIZINE [Concomitant]
     Active Substance: CETIRIZINE HYDROCHLORIDE
  5. CALCIUM [Concomitant]
     Active Substance: CALCIUM
  6. MONTELUKAST [Concomitant]
     Active Substance: MONTELUKAST SODIUM
  7. SYMBICORT [Concomitant]
     Active Substance: BUDESONIDE\FORMOTEROL FUMARATE DIHYDRATE
  8. LITHIUM. [Concomitant]
     Active Substance: LITHIUM
  9. ZOLOFT [Concomitant]
     Active Substance: SERTRALINE HYDROCHLORIDE
  10. DEPO-PROVERA [Concomitant]
     Active Substance: MEDROXYPROGESTERONE ACETATE
  11. ENERGY SHOTS [Concomitant]

REACTIONS (13)
  - Abnormal behaviour [None]
  - Aggression [None]
  - Imprisonment [None]
  - Alcoholism [None]
  - Dependence [None]
  - Anger [None]
  - Suicidal ideation [None]
  - Paranoia [None]
  - Bipolar disorder [None]
  - Homicidal ideation [None]
  - Alcohol abuse [None]
  - Drug dependence [None]
  - Psychotic disorder [None]

NARRATIVE: CASE EVENT DATE: 201506
